FAERS Safety Report 4477541-4 (Version None)
Quarter: 2004Q4

REPORT INFORMATION
  Report Type: 
  Country: None (occurrence: None)
  Receive Date: 20041012
  Receipt Date: 20040923
  Transmission Date: 20050328
  Serious: Yes (Disabling, Other)
  Sender: FDA-Public Use
  Company Number: 239509

PATIENT
  Sex: Female

DRUGS (1)
  1. NOVOSEVEN [Suspect]
     Indication: OPERATIVE HAEMORRHAGE
     Dosage: SINGLE, INTRAVENOUS
     Route: 042

REACTIONS (2)
  - BLINDNESS UNILATERAL [None]
  - RETINAL ARTERY THROMBOSIS [None]
